FAERS Safety Report 9122937 (Version 1)
Quarter: 2013Q1

REPORT INFORMATION
  Report Type: Spontaneous
  Country: NL (occurrence: NL)
  Receive Date: 20130115
  Receipt Date: 20130115
  Transmission Date: 20140127
  Serious: Yes (Hospitalization)
  Sender: FDA-Public Use
  Company Number: NL-PFIZER INC-2013014415

PATIENT
  Age: 70 Year
  Sex: Male

DRUGS (3)
  1. PANTOPRAZOLE [Suspect]
     Indication: ABDOMINAL PAIN UPPER
     Dosage: 20 MG, 1X/DAY
     Route: 048
     Dates: start: 201212
  2. CAPTOPRIL [Interacting]
     Dosage: 150 MG DAILY
     Route: 048
     Dates: start: 2010
  3. HOMEOPATHICS [Interacting]
     Indication: COUGH
     Dosage: 250 MG, 1X/DAY
     Dates: start: 20121214, end: 20121214

REACTIONS (5)
  - Drug interaction [Recovering/Resolving]
  - Dyspnoea [Recovering/Resolving]
  - Chest discomfort [Recovering/Resolving]
  - Oedema [Recovering/Resolving]
  - Angioedema [Recovering/Resolving]
